FAERS Safety Report 9095716 (Version 2)
Quarter: 2013Q2

REPORT INFORMATION
  Report Type: Spontaneous
  Country: BR (occurrence: BR)
  Receive Date: 20130220
  Receipt Date: 20130417
  Transmission Date: 20140414
  Serious: Yes (Other)
  Sender: FDA-Public Use
  Company Number: BR-AMGEN-BRASP2012011433

PATIENT
  Age: 43 Year
  Sex: Female
  Weight: 56 kg

DRUGS (9)
  1. ENBREL [Suspect]
     Indication: ANKYLOSING SPONDYLITIS
     Dosage: 50 MG, ONCE WEEKLY
     Route: 058
     Dates: start: 201112, end: 2012
  2. ENBREL [Suspect]
     Dosage: 50 MG, QWK
     Route: 058
     Dates: start: 201206, end: 20130213
  3. ENBREL [Suspect]
     Dosage: UNK
     Dates: start: 20130327
  4. ALPRAZOLAM [Concomitant]
     Dosage: 1 MG, UNK
  5. AMYTRIL [Concomitant]
     Dosage: STRENGTH 25 MG, UNSPECIFIED DOSE, EVERY NIGHT
  6. EXODUS                             /01033301/ [Concomitant]
     Dosage: UNK UNK, QD
  7. MOTILIUM                           /00498201/ [Concomitant]
     Indication: GASTROOESOPHAGEAL REFLUX DISEASE
     Dosage: 10 MG, UNK
  8. PURAN T4 [Concomitant]
     Dosage: STRENGTH 30MG
  9. LANZO [Concomitant]
     Indication: GASTROOESOPHAGEAL REFLUX DISEASE
     Dosage: UNK

REACTIONS (12)
  - Dysgeusia [Not Recovered/Not Resolved]
  - Injection site mass [Unknown]
  - Burning sensation [Unknown]
  - Haematoma [Unknown]
  - Urinary tract infection [Unknown]
  - Gingival infection [Unknown]
  - Injection site bruising [Unknown]
  - Injection site pain [Unknown]
  - Injection site pruritus [Not Recovered/Not Resolved]
  - Injection site erythema [Unknown]
  - Tooth abscess [Not Recovered/Not Resolved]
  - Paraesthesia [Not Recovered/Not Resolved]
